FAERS Safety Report 6592563 (Version 3)
Quarter: 2016Q1

REPORT INFORMATION
  Report Type: Spontaneous
  Country: GB (occurrence: GB)
  Receive Date: 20080325
  Receipt Date: 20160202
  Transmission Date: 20160526
  Serious: Yes (Other)
  Sender: FDA-Public Use
  Company Number: GB-BRISTOL-MYERS SQUIBB COMPANY-14121487

PATIENT
  Sex: Female

DRUGS (3)
  1. IMPLANON [Interacting]
     Active Substance: ETONOGESTREL
     Indication: CONTRACEPTION
     Dosage: UNK
     Route: 058
     Dates: start: 2006
  2. COMBIVIR [Interacting]
     Active Substance: LAMIVUDINE\ZIDOVUDINE
     Indication: RETROVIRAL INFECTION
     Dosage: 1 DF, QD
     Route: 048
  3. EFAVIRENZ [Suspect]
     Active Substance: EFAVIRENZ
     Indication: RETROVIRAL INFECTION
     Dosage: UNK
     Route: 048

REACTIONS (2)
  - Drug interaction [Unknown]
  - Pregnancy with implant contraceptive [Unknown]
